FAERS Safety Report 6137445-8 (Version None)
Quarter: 2009Q1

REPORT INFORMATION
  Report Type: 
  Country: None (occurrence: None)
  Receive Date: 20090326
  Receipt Date: 20090311
  Transmission Date: 20090719
  Serious: Yes (Hospitalization)
  Sender: FDA-Public Use
  Company Number: 000146

PATIENT
  Sex: Male
  Weight: 83.4 kg

DRUGS (10)
  1. ROTIGOTINE [Suspect]
     Indication: PARKINSON'S DISEASE
     Dosage: (2 MG QD TRANSDERMAL)
     Route: 062
     Dates: start: 20070601, end: 20080601
  2. COZAAR [Concomitant]
  3. CELEBREX [Concomitant]
  4. ASPIRIN [Concomitant]
  5. ATENOLOL [Concomitant]
  6. FLOMAX /01280302/ [Concomitant]
  7. ZOCOR [Concomitant]
  8. SINEMET [Concomitant]
  9. ESIDRIX [Concomitant]
  10. REQUIP [Concomitant]

REACTIONS (6)
  - ARTERIOSCLEROSIS CORONARY ARTERY [None]
  - CORONARY ARTERY BYPASS [None]
  - CORONARY ARTERY OCCLUSION [None]
  - MYOCARDIAL ISCHAEMIA [None]
  - SHOULDER ARTHROPLASTY [None]
  - TREMOR [None]
